FAERS Safety Report 7996994-8 (Version None)
Quarter: 2011Q4

REPORT INFORMATION
  Report Type: 
  Country: None (occurrence: None)
  Receive Date: 20111221
  Receipt Date: 20111216
  Transmission Date: 20120403
  Serious: Yes (Hospitalization)
  Sender: FDA-Public Use
  Company Number: PHHY2011TR70580

PATIENT
  Age: 18 Year
  Sex: Female

DRUGS (1)
  1. EXJADE [Suspect]
     Indication: THALASSAEMIA BETA
     Route: 048
     Dates: start: 20100101, end: 20110806

REACTIONS (1)
  - EAR PAIN [None]
